FAERS Safety Report 7345178-5 (Version None)
Quarter: 2011Q1

REPORT INFORMATION
  Report Type: 
  Country: None (occurrence: None)
  Receive Date: 20110310
  Receipt Date: 20110301
  Transmission Date: 20110831
  Serious: Yes (Other)
  Sender: FDA-Public Use
  Company Number: BR-ASTRAZENECA-2011SE11512

PATIENT
  Age: 44 Year
  Sex: Female
  Weight: 75 kg

DRUGS (4)
  1. ATACAND [Suspect]
     Indication: HYPERTENSION
     Route: 048
     Dates: start: 20101001
  2. SYMBICORT [Suspect]
     Dosage: 320/9 MCG, DAILY
     Route: 055
     Dates: start: 20100101, end: 20110201
  3. SYMBICORT [Suspect]
     Indication: ASTHMA
     Dosage: 320/9 MCG, DAILY
     Route: 055
     Dates: start: 20080101, end: 20090101
  4. SYMBICORT [Suspect]
     Dosage: 320/9 MCG, UPTO THREE EXTRA DOSES/ PRN
     Route: 055
     Dates: start: 20080101, end: 20090101

REACTIONS (6)
  - HYPOAESTHESIA ORAL [None]
  - DRUG DOSE OMISSION [None]
  - HYPOAESTHESIA [None]
  - HYPOAESTHESIA FACIAL [None]
  - BLOOD PRESSURE INADEQUATELY CONTROLLED [None]
  - BLOOD PRESSURE INCREASED [None]
